FAERS Safety Report 11705388 (Version 2)
Quarter: 2015Q4

REPORT INFORMATION
  Report Type: Spontaneous
  Country: IE (occurrence: IE)
  Receive Date: 20151106
  Receipt Date: 20151116
  Transmission Date: 20160304
  Serious: Yes (Other)
  Sender: FDA-Public Use
  Company Number: PHHY2015IE144295

PATIENT
  Age: 54 Year
  Sex: Female

DRUGS (4)
  1. CLARITHROMYCIN. [Suspect]
     Active Substance: CLARITHROMYCIN
     Indication: LOWER RESPIRATORY TRACT INFECTION
     Dosage: 500 MG, BID
     Route: 065
  2. HALOPERIDOL. [Concomitant]
     Active Substance: HALOPERIDOL
     Indication: BIPOLAR DISORDER
     Dosage: 15 MG, TID
     Route: 065
  3. CARBAMAZEPINE. [Interacting]
     Active Substance: CARBAMAZEPINE
     Indication: BIPOLAR DISORDER
     Dosage: 600 MG, QD
     Route: 065
  4. PRIADEL [Interacting]
     Active Substance: LITHIUM CARBONATE
     Indication: BIPOLAR DISORDER
     Dosage: 600 MG, QD
     Route: 065

REACTIONS (10)
  - Elevated mood [Unknown]
  - Parkinsonian gait [Unknown]
  - Tachyphrenia [Unknown]
  - Extrapyramidal disorder [Unknown]
  - Tremor [Unknown]
  - Bipolar disorder [Unknown]
  - Drug interaction [Unknown]
  - Disease recurrence [Unknown]
  - Hypomania [Unknown]
  - Muscle rigidity [Unknown]
